FAERS Safety Report 10175496 (Version 4)
Quarter: 2014Q2

REPORT INFORMATION
  Report Type: Report from Study
  Country: GB (occurrence: GB)
  Receive Date: 20140516
  Receipt Date: 20140612
  Transmission Date: 20141212
  Serious: Yes (Hospitalization)
  Sender: FDA-Public Use
  Company Number: GB-ROCHE-1400186

PATIENT
  Age: 70 Year
  Sex: Male
  Weight: 106.8 kg

DRUGS (10)
  1. OBINUTUZUMAB [Suspect]
     Indication: NON-HODGKIN^S LYMPHOMA
     Dosage: VOLUME OF LAST DOSE TAKEN 250ML, MOST RECENT DOSE PRIOR TO AE GIVEN ON 05/MAR/2014
     Route: 042
     Dates: start: 20120607
  2. BENDAMUSTINE [Suspect]
     Indication: NON-HODGKIN^S LYMPHOMA
     Dosage: ONCE EVERY 4 WEEKS; MOST RECENT DOSE PRIOR TO AE 02/NOV/2012 WAS 157.5MG
     Route: 042
     Dates: start: 20120607
  3. PANTOPRAZOLE [Concomitant]
     Route: 065
     Dates: start: 20120427
  4. TAMSULOSIN HYDROCHLORIDE [Concomitant]
     Indication: BENIGN PROSTATIC HYPERPLASIA
     Route: 065
     Dates: start: 20120206
  5. TRAMADOL [Concomitant]
     Indication: SPINAL OSTEOARTHRITIS
     Route: 065
     Dates: start: 20061006
  6. PARACETAMOL [Concomitant]
     Indication: PREMEDICATION
     Route: 065
     Dates: start: 20120607
  7. CHLORPHENIRAMINE [Concomitant]
     Indication: PREMEDICATION
     Route: 065
     Dates: start: 20120607
  8. PIRITON [Concomitant]
     Indication: ANTIALLERGIC THERAPY
     Route: 065
     Dates: start: 20130204
  9. HYDROXYZINE [Concomitant]
     Indication: RASH
     Route: 065
     Dates: start: 20130512
  10. DOXEPIN [Concomitant]
     Indication: RASH
     Route: 065
     Dates: start: 20130920

REACTIONS (1)
  - Febrile neutropenia [Recovered/Resolved]
